FAERS Safety Report 5239308-9 (Version None)
Quarter: 2007Q1

REPORT INFORMATION
  Report Type: 
  Country: None (occurrence: None)
  Receive Date: 20070216
  Receipt Date: 20070206
  Transmission Date: 20070707
  Serious: Yes (Other)
  Sender: FDA-Public Use
  Company Number: US-JNJFOC-20070201721

PATIENT
  Sex: Female

DRUGS (4)
  1. REMICADE [Suspect]
     Indication: RHEUMATOID ARTHRITIS
     Route: 042
  2. HYDROCODONE [Concomitant]
  3. MOTRIN [Concomitant]
  4. ROBAXIN [Concomitant]

REACTIONS (2)
  - INFUSION RELATED REACTION [None]
  - VISION BLURRED [None]
